FAERS Safety Report 23381626 (Version 2)
Quarter: 2024Q1

REPORT INFORMATION
  Report Type: Other
  Country: TR (occurrence: None)
  Receive Date: 20240109
  Receipt Date: 20240118
  Transmission Date: 20240410
  Serious: Yes (Other)
  Sender: FDA-Public Use
  Company Number: TR-ROCHE-2871866

PATIENT
  Sex: Female
  Weight: 45 kg

DRUGS (1)
  1. ENTRECTINIB [Suspect]
     Active Substance: ENTRECTINIB
     Indication: Neoplasm
     Dosage: 100 MG 1166394S01, 200 MG 1166059?200 MG + 100 MG (300?MG)
     Route: 048
     Dates: start: 20210324

REACTIONS (5)
  - Tibia fracture [Recovering/Resolving]
  - Thyroid disorder [Recovered/Resolved]
  - Generalised oedema [Unknown]
  - Visual impairment [Not Recovered/Not Resolved]
  - Chondropathy [Recovered/Resolved]

NARRATIVE: CASE EVENT DATE: 20210623
